FAERS Safety Report 4429502-9 (Version None)
Quarter: 2004Q3

REPORT INFORMATION
  Report Type: 
  Country: None (occurrence: None)
  Receive Date: 20040819
  Receipt Date: 20040811
  Transmission Date: 20050211
  Serious: Yes (Life-Threatening, Hospitalization)
  Sender: FDA-Public Use
  Company Number: PT-ROCHE-377664

PATIENT
  Age: 12 Hour
  Sex: Male

DRUGS (3)
  1. VALIUM [Suspect]
  2. PERPHENAZINE AND AMITRIPTYLINE HCL [Suspect]
     Dosage: DOSE REPORTED AS 15MG + 2MG EACH DAY.
  3. FLUOXETINE HCL [Suspect]

REACTIONS (3)
  - DRUG EXPOSURE DURING PREGNANCY [None]
  - FOETAL GROWTH RETARDATION [None]
  - NEONATAL DIABETES MELLITUS [None]
